FAERS Safety Report 10191367 (Version 3)
Quarter: 2014Q2

REPORT INFORMATION
  Report Type: Spontaneous
  Country: DE (occurrence: None)
  Receive Date: 20140521
  Receipt Date: 20140619
  Transmission Date: 20141212
  Serious: Yes (Congenital Anomaly, Other)
  Sender: FDA-Public Use
  Company Number: AUR-APL-2014-05899

PATIENT
  Sex: Male

DRUGS (3)
  1. MIRTAZAPINE [Suspect]
     Indication: DEPRESSION
     Route: 064
  2. CITALOPRAM [Suspect]
     Indication: DEPRESSION
     Route: 064
     Dates: start: 20121212, end: 20130421
  3. FOLSAEURE (FOLIC ACID) [Concomitant]

REACTIONS (7)
  - Limb reduction defect [None]
  - Asplenia [None]
  - Foetal exposure during pregnancy [None]
  - Abortion [None]
  - Maternal drugs affecting foetus [None]
  - Truncus arteriosus persistent [None]
  - Neonatal disorder [None]
